FAERS Safety Report 4437333-9 (Version None)
Quarter: 2004Q3

REPORT INFORMATION
  Report Type: 
  Country: None (occurrence: None)
  Receive Date: 20040727
  Receipt Date: 20030929
  Transmission Date: 20050211
  Serious: Yes (Death)
  Sender: FDA-Public Use
  Company Number: HQWYE917229SEP03

PATIENT
  Age: 42 Year
  Sex: Female

DRUGS (16)
  1. ENBREL [Suspect]
     Indication: RHEUMATOID ARTHRITIS
     Dosage: 25 MG 2 X PER 1 WK, SUBCUTANEOUS
     Route: 058
     Dates: start: 20000901, end: 20020901
  2. DIPHENHYDRAMINE HCL [Suspect]
  3. LANSOPRAZOLE [Concomitant]
  4. VALPROATE SODIUM [Concomitant]
  5. CELECOXIB (CELECOXIB) [Concomitant]
  6. VENLAFAXINE HCL [Concomitant]
  7. PREDNISONE [Concomitant]
  8. OLANZAPINE [Concomitant]
  9. PANTOPRAZOLE SODIUM [Concomitant]
  10. DIAZEPAM [Concomitant]
  11. LORAZEPAM [Concomitant]
  12. AMITRIPTYLINE HCL [Concomitant]
  13. TEMAZEPAM [Concomitant]
  14. GENTAMICIN [Concomitant]
  15. SULFASALAZINE [Concomitant]
  16. RISPERDIONE (RISPERIDONE) [Concomitant]

REACTIONS (4)
  - DISEASE PROGRESSION [None]
  - DYSPNOEA [None]
  - EMPHYSEMA [None]
  - OVERDOSE [None]
